FAERS Safety Report 21572826 (Version 1)
Quarter: 2022Q4

REPORT INFORMATION
  Report Type: Spontaneous
  Country: US (occurrence: None)
  Receive Date: 20221108
  Receipt Date: 20221108
  Transmission Date: 20230113
  Serious: Yes (Other)
  Sender: FDA-Public Use
  Company Number: None

PATIENT
  Age: 8 Year
  Sex: Female
  Weight: 31.5 kg

DRUGS (2)
  1. MONTELUKAST [Suspect]
     Active Substance: MONTELUKAST SODIUM
     Dates: start: 20210921, end: 20221030
  2. MELATONIN [Concomitant]
     Active Substance: MELATONIN

REACTIONS (5)
  - Aggression [None]
  - Irritability [None]
  - Negativism [None]
  - Anxiety [None]
  - Sleep disorder [None]

NARRATIVE: CASE EVENT DATE: 20210921
